FAERS Safety Report 5599380-3 (Version None)
Quarter: 2007Q4

REPORT INFORMATION
  Report Type: 
  Country: None (occurrence: None)
  Receive Date: 20071226
  Receipt Date: 20071118
  Transmission Date: 20080405
  Serious: No
  Sender: FDA-Public Use
  Company Number: 2007PV033736

PATIENT
  Age: 55 Year
  Sex: Male
  Weight: 158.759 kg

DRUGS (10)
  1. SYMLIN [Suspect]
     Indication: DECREASED APPETITE
     Dosage: 120, 60, 30 MCG, TID, SC
     Route: 058
     Dates: start: 20071020, end: 20071001
  2. SYMLIN [Suspect]
     Indication: GLUCOSE TOLERANCE IMPAIRED
     Dosage: 120, 60, 30 MCG, TID, SC
     Route: 058
     Dates: start: 20071020, end: 20071001
  3. SYMLIN [Suspect]
     Indication: DECREASED APPETITE
     Dosage: 120, 60, 30 MCG, TID, SC
     Route: 058
     Dates: start: 20071001, end: 20071101
  4. SYMLIN [Suspect]
     Indication: GLUCOSE TOLERANCE IMPAIRED
     Dosage: 120, 60, 30 MCG, TID, SC
     Route: 058
     Dates: start: 20071001, end: 20071101
  5. SYMLIN [Suspect]
     Indication: DECREASED APPETITE
     Dosage: 120, 60, 30 MCG, TID, SC
     Route: 058
     Dates: start: 20071101, end: 20071107
  6. SYMLIN [Suspect]
     Indication: GLUCOSE TOLERANCE IMPAIRED
     Dosage: 120, 60, 30 MCG, TID, SC
     Route: 058
     Dates: start: 20071101, end: 20071107
  7. ASPIRIN [Concomitant]
  8. PLAVIX [Concomitant]
  9. LOVASTATIN [Concomitant]
  10. ZANTAC [Concomitant]

REACTIONS (1)
  - ABDOMINAL PAIN UPPER [None]
